FAERS Safety Report 5447385-5 (Version None)
Quarter: 2007Q3

REPORT INFORMATION
  Report Type: 
  Country: None (occurrence: None)
  Receive Date: 20070905
  Receipt Date: 20070905
  Transmission Date: 20080115
  Serious: Yes (Other)
  Sender: FDA-Public Use
  Company Number: None

PATIENT
  Age: 50 Year
  Sex: Male
  Weight: 102.0593 kg

DRUGS (1)
  1. COZAAR [Suspect]
     Dosage: 100 DAILY PO
     Route: 048

REACTIONS (1)
  - MUSCLE SPASMS [None]
